FAERS Safety Report 6972558-X (Version None)
Quarter: 2010Q3

REPORT INFORMATION
  Report Type: 
  Country: None (occurrence: None)
  Receive Date: 20100907
  Receipt Date: 20100824
  Transmission Date: 20110219
  Serious: Yes (Hospitalization)
  Sender: FDA-Public Use
  Company Number: 014318

PATIENT
  Sex: Male
  Weight: 102.5 kg

DRUGS (3)
  1. CIMZIA [Suspect]
     Indication: CROHN'S DISEASE
     Dosage: (TWO SHOTS MONTHLY SUBCUTANEOUS)
     Route: 058
     Dates: start: 20100301, end: 20100501
  2. OXYCONTIN [Concomitant]
  3. KLONOPIN [Concomitant]

REACTIONS (5)
  - FURUNCLE [None]
  - LIMB INJURY [None]
  - SKIN DISCOLOURATION [None]
  - SKIN LACERATION [None]
  - STAPHYLOCOCCAL INFECTION [None]
